FAERS Safety Report 18817521 (Version 7)
Quarter: 2023Q4

REPORT INFORMATION
  Report Type: Spontaneous
  Country: US (occurrence: US)
  Receive Date: 20210201
  Receipt Date: 20231123
  Transmission Date: 20240110
  Serious: Yes (Hospitalization, Other)
  Sender: FDA-Public Use
  Company Number: US-PFIZER INC-2021067613

PATIENT
  Age: 68 Year
  Sex: Female
  Weight: 61.224 kg

DRUGS (5)
  1. XELJANZ XR [Suspect]
     Active Substance: TOFACITINIB CITRATE
     Indication: Psoriatic arthropathy
     Dosage: 11 MG
  2. XELJANZ XR [Suspect]
     Active Substance: TOFACITINIB CITRATE
     Indication: Psoriasis
     Dosage: 11 MG
     Dates: start: 2020
  3. XELJANZ XR [Suspect]
     Active Substance: TOFACITINIB CITRATE
     Indication: Skin disorder
  4. XELJANZ XR [Suspect]
     Active Substance: TOFACITINIB CITRATE
     Indication: Arthralgia
  5. XELJANZ XR [Suspect]
     Active Substance: TOFACITINIB CITRATE
     Indication: Arthritis

REACTIONS (6)
  - Illness [Unknown]
  - Gastrointestinal disorder [Unknown]
  - Rib fracture [Unknown]
  - Fall [Unknown]
  - Malaise [Unknown]
  - Depression [Unknown]

NARRATIVE: CASE EVENT DATE: 20210122
